FAERS Safety Report 5869428-7 (Version None)
Quarter: 2008Q3

REPORT INFORMATION
  Report Type: 
  Country: None (occurrence: None)
  Receive Date: 20080829
  Receipt Date: 20080825
  Transmission Date: 20090109
  Serious: Yes (Other)
  Sender: FDA-Public Use
  Company Number: 2008SP017462

PATIENT
  Age: 3 Year
  Sex: Female

DRUGS (4)
  1. MIRALAX [Suspect]
     Indication: CONSTIPATION
     Dosage: PO
     Route: 048
     Dates: start: 20080702, end: 20080712
  2. MIRALAX [Suspect]
     Indication: OFF LABEL USE
     Dosage: PO
     Route: 048
     Dates: start: 20080702, end: 20080712
  3. MIRALAX [Suspect]
     Indication: CONSTIPATION
     Dosage: PO
     Route: 048
     Dates: start: 20080715, end: 20080729
  4. MIRALAX [Suspect]
     Indication: OFF LABEL USE
     Dosage: PO
     Route: 048
     Dates: start: 20080715, end: 20080729

REACTIONS (1)
  - SWELLING FACE [None]
